FAERS Safety Report 9500070 (Version 1)
Quarter: 2013Q1

REPORT INFORMATION
  Report Type: Spontaneous
  Country: US (occurrence: None)
  Receive Date: 20130129
  Receipt Date: 20130129
  Transmission Date: 20140127
  Serious: Yes (Other)
  Sender: FDA-Public Use
  Company Number: 1000028216

PATIENT
  Age: 77 Year
  Sex: Male

DRUGS (15)
  1. BYSTOLIC [Suspect]
     Indication: BLOOD PRESSURE
     Dates: start: 201201, end: 2012
  2. BYSTOLIC [Suspect]
     Dates: start: 2012, end: 201202
  3. BYSTOLIC [Suspect]
     Dates: start: 201202, end: 201203
  4. RAMIPRIL (RAMIPRIL) (RAMIPRIL) [Concomitant]
  5. ALDACTONE (SPIRONOLACTONE) (SPIRONOLACTONE) [Concomitant]
  6. WARFARIN (WARFARIN) (WARFAIN) [Concomitant]
  7. FUROSEMIDE [Concomitant]
  8. SYNTHROID (LEVOTHYROXINE SODIUM) (LEVOTHYROXINE SODIUM) [Concomitant]
  9. DIGOXIN (DIGOXIN) (DIGOXIN) [Concomitant]
  10. FLOMAX (TAMSULOSIN) (TAMSULOSIN) [Concomitant]
  11. LIBRIUM (CHLORDIAZEPOXINE) (CHLORDIAZEPOXINE) [Concomitant]
  12. COREG (CARVEDILOL) (CARVEILOL) [Concomitant]
  13. ENDOCET (OXYCOCET) (OXYCOCET) [Concomitant]
  14. HYDROCODONE (HYDROCODONE) (HYDROCODONE) [Concomitant]
  15. TEKTURNA (ALISKIREN FURMATE) (ALISKIREN FUMARATE) [Concomitant]

REACTIONS (3)
  - Blood pressure increased [None]
  - Back pain [None]
  - Constipation [None]
